FAERS Safety Report 8585894-0 (Version None)
Quarter: 2012Q3

REPORT INFORMATION
  Report Type: 
  Country: None (occurrence: None)
  Receive Date: 20120802
  Receipt Date: 20120802
  Transmission Date: 20120928
  Serious: Yes (Other)
  Sender: FDA-Public Use
  Company Number: None

PATIENT
  Age: 28 Year
  Sex: Female
  Weight: 56.6996 kg

DRUGS (1)
  1. YAZ [Suspect]
     Indication: MENORRHAGIA
     Dates: start: 20080401, end: 20100430

REACTIONS (10)
  - WEIGHT INCREASED [None]
  - FEELING ABNORMAL [None]
  - HAIR DISORDER [None]
  - HUNGER [None]
  - ALOPECIA [None]
  - HYPOGLYCAEMIA [None]
  - FATIGUE [None]
  - FALL [None]
  - DEPRESSION SUICIDAL [None]
  - VISION BLURRED [None]
